FAERS Safety Report 18756210 (Version 1)
Quarter: 2021Q1

REPORT INFORMATION
  Report Type: Spontaneous
  Country: US (occurrence: US)
  Receive Date: 20210119
  Receipt Date: 20210119
  Transmission Date: 20210419
  Serious: Yes (Other)
  Sender: FDA-Public Use
  Company Number: US-BAYER-2021-023091

PATIENT

DRUGS (1)
  1. ACETYLSALICYLIC ACID [Suspect]
     Active Substance: ASPIRIN

REACTIONS (2)
  - Intentional product misuse [None]
  - Contusion [None]
